FAERS Safety Report 9224318 (Version 1)
Quarter: 2013Q1

REPORT INFORMATION
  Report Type: Spontaneous
  Country: US (occurrence: None)
  Receive Date: 20120917
  Receipt Date: 20120917
  Transmission Date: 20140127
  Serious: Yes (Disabling)
  Sender: FDA-Public Use
  Company Number: 2011SP054672

PATIENT
  Age: 30 Year
  Sex: Female

DRUGS (1)
  1. IMPLANON 68 MG [Suspect]
     Indication: CONTRACEPTION
     Dosage: 68 MG; ONCE; SBDE
     Dates: start: 20111117

REACTIONS (4)
  - Application site haematoma [None]
  - Implant site pain [None]
  - Implant site paraesthesia [None]
  - Application site discomfort [None]
